FAERS Safety Report 9154613 (Version 2)
Quarter: 2013Q1

REPORT INFORMATION
  Report Type: Spontaneous
  Country: US (occurrence: None)
  Receive Date: 20130205
  Receipt Date: 20130208
  Transmission Date: 20140127
  Serious: Yes (Life-Threatening, Hospitalization, Disabling, Other)
  Sender: FDA-Public Use
  Company Number: AUR-APL-2013-01140

PATIENT
  Age: 61 Year
  Sex: Female

DRUGS (5)
  1. TRIMETHOPRIM SULFAMETHOXAZOLE [Suspect]
     Indication: UPPER RESPIRATORY TRACT INFECTION
  2. LISINOPRIL (LISINOPRIL) [Suspect]
  3. METFORMIN (METFORMIN) [Concomitant]
  4. METHOTREXATE (METHOTREXATE) [Concomitant]
  5. LEVOTHYROXINE (LEVOTHYROXINE) [Concomitant]

REACTIONS (17)
  - Hyperkalaemia [None]
  - Pallor [None]
  - Respiratory distress [None]
  - Tachypnoea [None]
  - Breath sounds abnormal [None]
  - Tachycardia [None]
  - Asthenia [None]
  - Hyperglycaemia [None]
  - Blood sodium decreased [None]
  - Dialysis [None]
  - Chest discomfort [None]
  - Fatigue [None]
  - Nausea [None]
  - Hyperhidrosis [None]
  - Blood pressure systolic increased [None]
  - Respiratory rate increased [None]
  - Blood pressure diastolic decreased [None]
